FAERS Safety Report 6753454-X (Version None)
Quarter: 2010Q2

REPORT INFORMATION
  Report Type: 
  Country: None (occurrence: None)
  Receive Date: 20100603
  Receipt Date: 20100524
  Transmission Date: 20101027
  Serious: Yes (Other)
  Sender: FDA-Public Use
  Company Number: ES-PFIZER INC-2010064654

PATIENT
  Age: 18 Month
  Sex: Male

DRUGS (1)
  1. ZITHROMAX [Suspect]
     Indication: ACUTE TONSILLITIS
     Dosage: 4 ML, 1X/DAY
     Route: 048
     Dates: start: 20070501, end: 20070501

REACTIONS (3)
  - TOOTH DISCOLOURATION [None]
  - TOOTH EROSION [None]
  - TOOTH LOSS [None]
